FAERS Safety Report 5484486-X (Version None)
Quarter: 2007Q4

REPORT INFORMATION
  Report Type: 
  Country: None (occurrence: None)
  Receive Date: 20071009
  Receipt Date: 20071002
  Transmission Date: 20080405
  Serious: Yes (Other)
  Sender: FDA-Public Use
  Company Number: CHPA2007US10270

PATIENT
  Age: 25 Year
  Sex: Female

DRUGS (2)
  1. NICOTINE [Suspect]
     Indication: SMOKING CESSATION THERAPY
     Dosage: TRANSDERMAL; 21 MG, ONCE/SINGLE FOR 5 HOURS, TRANSDERMAL
     Route: 062
     Dates: start: 20071001, end: 20071001
  2. NICOTINE [Suspect]

REACTIONS (2)
  - SYNCOPE [None]
  - VOMITING [None]
